FAERS Safety Report 25700190 (Version 1)
Quarter: 2025Q3

REPORT INFORMATION
  Report Type: Spontaneous
  Country: US (occurrence: US)
  Receive Date: 20250819
  Receipt Date: 20250819
  Transmission Date: 20251021
  Serious: Yes (Other)
  Sender: MERCK SHARP & DOHME LLC
  Company Number: US-009507513-2319976

PATIENT
  Sex: Female

DRUGS (1)
  1. KEYTRUDA [Suspect]
     Active Substance: PEMBROLIZUMAB
     Indication: Ovarian cancer

REACTIONS (3)
  - Immune-mediated enterocolitis [Recovered/Resolved]
  - Off label use [Unknown]
  - Immune-mediated enterocolitis [Not Recovered/Not Resolved]
